FAERS Safety Report 8880057 (Version 1)
Quarter: 2012Q4

REPORT INFORMATION
  Report Type: 
  Country: US (occurrence: US)
  Receive Date: 20121031
  Receipt Date: 20121031
  Transmission Date: 20130627
  Serious: Yes (Other)
  Sender: FDA-Public Use
  Company Number: US-ROCHE-1125448

PATIENT
  Age: 40 Year
  Sex: Female

DRUGS (9)
  1. NUTROPIN AQ [Suspect]
     Indication: GROWTH HORMONE DEFICIENCY
     Dosage: 0.006mg/kg/wk, 0.08 ml per injection
     Route: 058
     Dates: start: 19990210
  2. LEVOTHROID [Concomitant]
     Route: 048
  3. PRILOSEC [Concomitant]
     Route: 048
  4. LORAZEPAM [Concomitant]
     Route: 048
  5. K-DUR [Concomitant]
     Route: 048
  6. THERAGRAN [Concomitant]
     Route: 065
  7. COMPAZINE [Concomitant]
     Route: 048
  8. PROPULSID [Concomitant]
     Route: 065
  9. IMITREX [Concomitant]
     Route: 065

REACTIONS (5)
  - Upper limb fracture [Unknown]
  - Gastrointestinal haemorrhage [Unknown]
  - Fluid retention [Unknown]
  - Weight increased [Unknown]
  - Asthma [Unknown]
